FAERS Safety Report 21581831 (Version 4)
Quarter: 2023Q2

REPORT INFORMATION
  Report Type: Other
  Country: US (occurrence: US)
  Receive Date: 20221111
  Receipt Date: 20230612
  Transmission Date: 20230722
  Serious: Yes (Other)
  Sender: FDA-Public Use
  Company Number: US-ARGENX-2022-ARGX-US002380

PATIENT
  Age: 56 Year
  Sex: Male

DRUGS (1)
  1. VYVGART [Suspect]
     Active Substance: EFGARTIGIMOD ALFA-FCAB
     Indication: Product used for unknown indication
     Dosage: UNK

REACTIONS (10)
  - Cough [Unknown]
  - Dysphagia [Unknown]
  - Fatigue [Unknown]
  - Infusion related reaction [Unknown]
  - Throat irritation [Unknown]
  - Symptom recurrence [Unknown]
  - Facial paresis [Unknown]
  - Sensitisation [Unknown]
  - Dry throat [Unknown]
  - Muscular weakness [Unknown]
